FAERS Safety Report 23806950 (Version 1)
Quarter: 2024Q2

REPORT INFORMATION
  Report Type: Spontaneous
  Country: DE (occurrence: DE)
  Receive Date: 20240502
  Receipt Date: 20240502
  Transmission Date: 20240716
  Serious: Yes (Congenital Anomaly)
  Sender: FDA-Public Use
  Company Number: DE-EMBRYOTOX-202301581-B

PATIENT
  Age: 1 Day
  Sex: Male
  Weight: 3.47 kg

DRUGS (8)
  1. ERELZI [Suspect]
     Active Substance: ETANERCEPT-SZZS
     Indication: Rheumatoid arthritis
     Dosage: 50 [MG/D (1X/WOCHE)], 1 TRIMESTER, 0. - 38.2. GESTATIONAL WEEK
     Route: 064
     Dates: start: 20230108, end: 20231003
  2. MISOPROSTOL [Concomitant]
     Active Substance: MISOPROSTOL
     Indication: Labour induction
     Dosage: UNK, 3 TRIMESTER, TRIMESTER: INTRAPARTUM
     Route: 064
  3. BOOSTRIX POLIO [Concomitant]
     Active Substance: DIPHTHERIA AND TETANUS TOXOIDS AND ACELLULAR PERTUSSIS ADSORBED AND INACTIVATED POLIOVIRUS VACCINE
     Indication: Immunisation
     Dosage: UNK, 3 TRIMESTER, 34.5. - 34.5. GESTATIONAL WEEK
     Route: 064
     Dates: start: 20230908, end: 20230908
  4. METHYLDOPA [Concomitant]
     Active Substance: METHYLDOPA
     Indication: Gestational hypertension
     Dosage: 750 [MG/D (3X250 MG) ] 3 SEPARATED DOSES, 3 TRIMESTER, 36.5. - 38.2. GESTATIONAL WEEK
     Route: 064
     Dates: start: 20230922, end: 20231003
  5. PIVMECILLINAM HYDROCHLORIDE [Concomitant]
     Active Substance: PIVMECILLINAM HYDROCHLORIDE
     Indication: Urinary tract infection
     Dosage: 1200 [MG/D (3X400 MG) ] 3 SEPARATED DOSES,2 TRIMESTER, 14.1. - 14.4. GESTATIONAL WEEK
     Route: 064
     Dates: start: 20230417, end: 20230420
  6. PIVMECILLINAM HYDROCHLORIDE [Concomitant]
     Active Substance: PIVMECILLINAM HYDROCHLORIDE
     Dosage: UNK,200 MG 400 MG
     Route: 065
  7. PREDNISOLONE [Concomitant]
     Active Substance: PREDNISOLONE
     Indication: Rheumatoid arthritis
     Dosage: 5 [MG/D ]/ EVERY 3-4 WEEKS FOR 3-4 DAYS, 1-5 MG/D, 2 TRIMESTER, 16.6. - 25.5. GESTATIONAL WEEK
     Route: 064
     Dates: start: 20230506, end: 20230707
  8. SERTRALINE [Concomitant]
     Active Substance: SERTRALINE HYDROCHLORIDE
     Indication: Depression
     Dosage: 50 [MG/D ]/ STARTED WITH 25 MG, INCREASED TO 50 MG AT GW 34.1, 3 TRIMESTER, 32.4. - 38.2. GESTATIONA
     Route: 064
     Dates: start: 20230824, end: 20231003

REACTIONS (3)
  - Atrial septal defect [Recovering/Resolving]
  - Ventricular septal defect [Recovering/Resolving]
  - Foetal exposure during pregnancy [Unknown]

NARRATIVE: CASE EVENT DATE: 20231001
